FAERS Safety Report 6106690-X (Version None)
Quarter: 2009Q1

REPORT INFORMATION
  Report Type: 
  Country: None (occurrence: None)
  Receive Date: 20090305
  Receipt Date: 20090219
  Transmission Date: 20090719
  Serious: Yes (Other)
  Sender: FDA-Public Use
  Company Number: 231986K09USA

PATIENT
  Age: 50 Year
  Sex: Female

DRUGS (3)
  1. REBIF [Suspect]
     Indication: MULTIPLE SCLEROSIS
     Dosage: 44 MCG, 3 IN  1 WEEKS, SUBCUTANEOUS
     Route: 058
     Dates: start: 20080820
  2. PROVIGIL [Concomitant]
  3. VITAMIN D [Concomitant]

REACTIONS (4)
  - FURUNCLE [None]
  - HALLUCINATION, VISUAL [None]
  - PHOTOPSIA [None]
  - STAPHYLOCOCCAL INFECTION [None]
